FAERS Safety Report 6545144-3 (Version None)
Quarter: 2010Q1

REPORT INFORMATION
  Report Type: 
  Country: None (occurrence: None)
  Receive Date: 20100121
  Receipt Date: 20091216
  Transmission Date: 20100710
  Serious: Yes (Other)
  Sender: FDA-Public Use
  Company Number: SE-SANOFI-AVENTIS-2010SA002545

PATIENT
  Age: 74 Year
  Sex: Male

DRUGS (10)
  1. ELIGARD [Suspect]
     Indication: PROSTATE CANCER
     Route: 058
     Dates: start: 20090529, end: 20090529
  2. ELIGARD [Suspect]
     Route: 058
     Dates: start: 20090306, end: 20090306
  3. BENSERAZIDE HYDROCHLORIDE/LEVODOPA [Concomitant]
     Indication: DRUG USE FOR UNKNOWN INDICATION
     Dates: start: 20061101
  4. MELPERONE HYDROCHLORIDE [Concomitant]
     Indication: DRUG USE FOR UNKNOWN INDICATION
     Dates: start: 20061101
  5. EPROSARTAN MESILATE/HYDROCHLOROTHIAZIDE [Concomitant]
     Indication: DRUG USE FOR UNKNOWN INDICATION
     Dates: start: 20061101
  6. BUDESONIDE/FORMOTEROL FUMARATE [Concomitant]
     Indication: DRUG USE FOR UNKNOWN INDICATION
     Dates: start: 20061101
  7. LEUPRORELIN ACETATE [Concomitant]
     Indication: DRUG USE FOR UNKNOWN INDICATION
     Dates: start: 20071009
  8. LEUPRORELIN ACETATE [Concomitant]
     Route: 058
     Dates: start: 20070423, end: 20070423
  9. LEUPRORELIN ACETATE [Concomitant]
     Route: 058
     Dates: start: 20061106, end: 20061106
  10. GONADORELIN ACETATE [Concomitant]
     Indication: DRUG USE FOR UNKNOWN INDICATION
     Dates: end: 20070524

REACTIONS (1)
  - DRUG INEFFECTIVE [None]
